FAERS Safety Report 8555632-6 (Version None)
Quarter: 2012Q3

REPORT INFORMATION
  Report Type: 
  Country: None (occurrence: None)
  Receive Date: 20120731
  Receipt Date: 20120717
  Transmission Date: 20120928
  Serious: Yes (Other)
  Sender: FDA-Public Use
  Company Number: US-ELI_LILLY_AND_COMPANY-US201207005476

PATIENT
  Sex: Female

DRUGS (1)
  1. CYMBALTA [Suspect]
     Indication: BACK PAIN
     Dosage: 60 MG, QD
     Dates: end: 20120601

REACTIONS (5)
  - COLD SWEAT [None]
  - RASH [None]
  - TENSION HEADACHE [None]
  - MUSCLE TIGHTNESS [None]
  - BLISTER [None]
